FAERS Safety Report 10067927 (Version 1)
Quarter: 2014Q2

REPORT INFORMATION
  Report Type: Spontaneous
  Country: DE (occurrence: DE)
  Receive Date: 20140409
  Receipt Date: 20140409
  Transmission Date: 20141212
  Serious: Yes (Other)
  Sender: FDA-Public Use
  Company Number: DE-ROXANE LABORATORIES, INC.-2014-RO-00562RO

PATIENT
  Age: 13 Day
  Sex: Female

DRUGS (1)
  1. DEXAMETHASONE [Suspect]
     Indication: NEONATAL RESPIRATORY DISTRESS SYNDROME
     Dosage: VERY LOW DOSE
     Route: 065

REACTIONS (2)
  - Cardiac output decreased [Recovered/Resolved]
  - Cardiomyopathy [Recovered/Resolved]
